FAERS Safety Report 4849229-9 (Version None)
Quarter: 2005Q4

REPORT INFORMATION
  Report Type: 
  Country: None (occurrence: None)
  Receive Date: 20051209
  Receipt Date: 20051128
  Transmission Date: 20060501
  Serious: Yes (Hospitalization)
  Sender: FDA-Public Use
  Company Number: AU-JNJFOC-20051200641

PATIENT
  Age: 34 Year
  Sex: Female

DRUGS (4)
  1. ZYDOL [Suspect]
     Indication: DRUG USE FOR UNKNOWN INDICATION
     Dosage: AS NECESSARY
     Route: 048
  2. YASMIN [Concomitant]
     Route: 065
  3. YASMIN [Concomitant]
     Route: 065
  4. CODEINE [Concomitant]
     Route: 065

REACTIONS (4)
  - CONVERSION DISORDER [None]
  - DYSPHEMIA [None]
  - EUPHORIC MOOD [None]
  - INAPPROPRIATE AFFECT [None]
